FAERS Safety Report 8186332-2 (Version None)
Quarter: 2012Q1

REPORT INFORMATION
  Report Type: 
  Country: None (occurrence: None)
  Receive Date: 20120301
  Receipt Date: 20120214
  Transmission Date: 20120608
  Serious: Yes (Other)
  Sender: FDA-Public Use
  Company Number: FK201200429

PATIENT
  Age: 95 Year
  Sex: Female
  Weight: 58 kg

DRUGS (1)
  1. VANCOMYCIN [Suspect]
     Indication: ARTHRITIS BACTERIAL
     Dosage: 500 MG, 2 IN 1 D, INTRAVENOUS (NOT OTHERWISE SPECIFIED)
     Route: 042
     Dates: start: 20120111, end: 20120117

REACTIONS (3)
  - HYPOPHAGIA [None]
  - MOUTH ULCERATION [None]
  - PALLOR [None]
